FAERS Safety Report 5141048-1 (Version None)
Quarter: 2006Q4

REPORT INFORMATION
  Report Type: 
  Country: None (occurrence: None)
  Receive Date: 20061026
  Receipt Date: 20060908
  Transmission Date: 20070319
  Serious: Yes (Hospitalization)
  Sender: FDA-Public Use
  Company Number: CHNY2006JP02344

PATIENT
  Age: 25 Year
  Sex: Male

DRUGS (2)
  1. TAVEGYL (NCH) (CLEMASTINE HYDROGEN FUMARATE) TABLET [Suspect]
     Indication: PRURITUS
     Dosage: 1 MG, ONCE/SINGLE, ORAL
     Route: 048
     Dates: start: 20060807, end: 20060807
  2. VEEN D (CALCIUM CHLORIDE DIHYDRATE, GLUCOSE, POTASSIUM CHLORIDE, SODIU [Concomitant]

REACTIONS (7)
  - ANAPHYLACTIC REACTION [None]
  - FEELING HOT [None]
  - HYPERHIDROSIS [None]
  - MALAISE [None]
  - PARAESTHESIA [None]
  - PULSE ABSENT [None]
  - SHOCK [None]
